FAERS Safety Report 9287598 (Version 2)
Quarter: 2013Q2

REPORT INFORMATION
  Report Type: Spontaneous
  Country: BR (occurrence: BR)
  Receive Date: 20130514
  Receipt Date: 20130527
  Transmission Date: 20140414
  Serious: Yes (Hospitalization)
  Sender: FDA-Public Use
  Company Number: BR-ROCHE-1223984

PATIENT
  Age: 36 Year
  Sex: Female

DRUGS (8)
  1. ACTEMRA [Suspect]
     Indication: RHEUMATOID ARTHRITIS
     Route: 065
     Dates: start: 201206
  2. FLANCOX [Suspect]
     Indication: RHEUMATOID ARTHRITIS
     Route: 048
     Dates: start: 201212
  3. CALCORT [Suspect]
     Indication: RHEUMATOID ARTHRITIS
     Route: 048
  4. IBUPROFEN [Concomitant]
     Indication: HEADACHE
     Route: 065
  5. HIGROTON [Concomitant]
     Indication: HYPERTENSION
     Route: 048
     Dates: start: 2011
  6. PARIET [Concomitant]
     Indication: GASTRITIS
     Route: 048
     Dates: start: 201211
  7. ENDOFOLIN [Concomitant]
     Indication: RHEUMATOID ARTHRITIS
     Route: 048
     Dates: start: 2008
  8. METHOTREXATE [Concomitant]
     Indication: RHEUMATOID ARTHRITIS
     Route: 048
     Dates: start: 2008

REACTIONS (2)
  - Oesophagitis [Recovering/Resolving]
  - Gastritis haemorrhagic [Recovering/Resolving]
